FAERS Safety Report 12523824 (Version 2)
Quarter: 2018Q3

REPORT INFORMATION
  Report Type: Report from Study
  Country: BR (occurrence: BR)
  Receive Date: 20160704
  Receipt Date: 20180724
  Transmission Date: 20181010
  Serious: Yes (Death)
  Sender: FDA-Public Use
  Company Number: AR-CIPLA LTD.-2016AR08230

PATIENT

DRUGS (9)
  1. FOLIC ACID. [Concomitant]
     Active Substance: FOLIC ACID
     Dosage: 350?1000 MCG, QD, FOR 21 DAYS FOLLOWING TREATMENT
     Route: 048
  2. CARBOPLATIN. [Suspect]
     Active Substance: CARBOPLATIN
     Indication: NON-SMALL CELL LUNG CANCER
     Dosage: AREA UNDER THE CURVE 5MG/ML X MIN OVER APPROXIMATELY 10 MINUTES,30 MINUTES AFTER INFUSION PEMETREXED
     Route: 042
  3. PEMETREXED. [Suspect]
     Active Substance: PEMETREXED
     Indication: NON-SMALL CELL LUNG CANCER
     Dosage: 500 MG/M2, ADMINISTERED OVER APPROXIMATELY 10 MINUTES, ON DAY 1 OF EACH 21 DAY CYCLE
     Route: 042
  4. VITAMIN B12 [Concomitant]
     Active Substance: CYANOCOBALAMIN
     Dosage: 1000 MCG, ONCE EVERY THREE CYCLES THEREAFTER
     Route: 030
  5. FOLIC ACID. [Concomitant]
     Active Substance: FOLIC ACID
     Indication: PRODUCT USED FOR UNKNOWN INDICATION
     Dosage: 350?1000 MCG, QD, WITHIN 7 DAYS OF THE FIRST DOSE OF PEMETREXED
     Route: 048
  6. VITAMIN B12 [Concomitant]
     Active Substance: CYANOCOBALAMIN
     Indication: PRODUCT USED FOR UNKNOWN INDICATION
     Dosage: 1000 MCG, GIVEN WITHIN 7 DAYS OF THE FIRST DOSE OF PEMETREXED
     Route: 030
  7. DEXAMETHASONE. [Concomitant]
     Active Substance: DEXAMETHASONE
     Indication: PRODUCT USED FOR UNKNOWN INDICATION
     Dosage: 4 MG, BID, DAY BEFORE ADMINISTRATION OF PEMETREXED
     Route: 048
  8. DEXAMETHASONE. [Concomitant]
     Active Substance: DEXAMETHASONE
     Dosage: 4 MG, BID, DAY AFTER ADMINISTRATION OF PEMETREXED
     Route: 048
  9. DEXAMETHASONE. [Concomitant]
     Active Substance: DEXAMETHASONE
     Dosage: 4 MG, BID, DAY OF ADMINISTRATION OF PEMETREXED
     Route: 048

REACTIONS (1)
  - Septic shock [Fatal]
